FAERS Safety Report 21269818 (Version 1)
Quarter: 2022Q3

REPORT INFORMATION
  Report Type: Spontaneous
  Country: US (occurrence: US)
  Receive Date: 20220830
  Receipt Date: 20220830
  Transmission Date: 20221027
  Serious: Yes (Death, Hospitalization, Other)
  Sender: FDA-Public Use
  Company Number: US-SANOFI-01249367

PATIENT
  Age: 64 Year
  Sex: Female

DRUGS (4)
  1. CABLIVI [Suspect]
     Active Substance: CAPLACIZUMAB-YHDP
     Indication: Polycythaemia vera
     Dosage: 1 MG, QD
     Route: 058
     Dates: start: 20220625
  2. CABLIVI [Suspect]
     Active Substance: CAPLACIZUMAB-YHDP
     Indication: Polycythaemia vera
     Dosage: 1 MG, QD
     Route: 058
     Dates: start: 20220625
  3. CABLIVI [Suspect]
     Active Substance: CAPLACIZUMAB-YHDP
     Indication: Polycythaemia vera
     Dosage: 1 MG, QD
     Route: 058
     Dates: start: 20220625
  4. CABLIVI [Suspect]
     Active Substance: CAPLACIZUMAB-YHDP
     Indication: Polycythaemia vera
     Dosage: 1 MG, QD
     Route: 058
     Dates: start: 20220625

REACTIONS (2)
  - Heart rate increased [Fatal]
  - Thrombotic thrombocytopenic purpura [Fatal]
